FAERS Safety Report 5358373-1 (Version None)
Quarter: 2007Q2

REPORT INFORMATION
  Report Type: 
  Country: None (occurrence: None)
  Receive Date: 20070613
  Receipt Date: 20070613
  Transmission Date: 20071010
  Serious: Yes (Hospitalization)
  Sender: FDA-Public Use
  Company Number: None

PATIENT
  Sex: Male
  Weight: 77.2 kg

DRUGS (11)
  1. CISPLATIN [Suspect]
     Dosage: 50 MG
  2. ETOPOSIDE [Suspect]
     Dosage: 50 MG
  3. ASPIRIN [Concomitant]
  4. ATENOLOL [Concomitant]
  5. ISOSORBIDE MONONITRATE [Concomitant]
  6. LOVASTATIN [Concomitant]
  7. NITROGLYCERIN [Concomitant]
  8. SAW PALMETTO [Concomitant]
  9. TEGRETOL [Concomitant]
  10. WARFARIN SODIUM [Concomitant]
  11. DILTIAZEM [Concomitant]

REACTIONS (6)
  - ASPIRATION [None]
  - FALL [None]
  - INFECTION [None]
  - MUSCULAR WEAKNESS [None]
  - RESPIRATORY FAILURE [None]
  - WOUND DEHISCENCE [None]
